FAERS Safety Report 20333032 (Version 4)
Quarter: 2022Q1

REPORT INFORMATION
  Report Type: Spontaneous
  Country: PL (occurrence: PL)
  Receive Date: 20220113
  Receipt Date: 20220217
  Transmission Date: 20220423
  Serious: Yes (Hospitalization, Other)
  Sender: FDA-Public Use
  Company Number: PL-Orion Corporation ORION PHARMA-SERT2021-0013

PATIENT
  Age: 17 Year
  Sex: Female

DRUGS (18)
  1. SERTRALINE HYDROCHLORIDE [Suspect]
     Active Substance: SERTRALINE HYDROCHLORIDE
     Indication: Schizophrenia
     Dosage: 50 MG, 1X/DAY
  2. ARIPIPRAZOLE [Suspect]
     Active Substance: ARIPIPRAZOLE
     Indication: Schizophrenia
     Dosage: 15 MG
  3. CLOZAPINE [Suspect]
     Active Substance: CLOZAPINE
     Indication: Schizophrenia
     Dosage: 125 MG, 1X/DAY
  4. CLOZAPINE [Suspect]
     Active Substance: CLOZAPINE
     Dosage: 375 MG, 1X/DAY (AS NEEDED)
  5. CLOZAPINE [Suspect]
     Active Substance: CLOZAPINE
     Dosage: 200 MG, 1X/DAY
  6. CLOZAPINE [Suspect]
     Active Substance: CLOZAPINE
     Dosage: 175 MG, 1X/DAY
  7. CLOZAPINE [Suspect]
     Active Substance: CLOZAPINE
     Dosage: UNK
  8. DIAZEPAM [Suspect]
     Active Substance: DIAZEPAM
     Indication: Seizure
     Dosage: 10 MG
     Route: 042
  9. DIAZEPAM [Suspect]
     Active Substance: DIAZEPAM
     Dosage: 5 MG
     Route: 042
  10. LORAZEPAM [Suspect]
     Active Substance: LORAZEPAM
     Indication: Schizophrenia
     Dosage: 3 MG, DAILY
  11. OLANZAPINE [Suspect]
     Active Substance: OLANZAPINE
     Indication: Schizophrenia
     Dosage: 15 MG, DAILY
  12. OPIPRAMOL [Suspect]
     Active Substance: OPIPRAMOL
     Indication: Schizophrenia
     Dosage: UNK
  13. PERAZINE [Suspect]
     Active Substance: PERAZINE
     Indication: Schizophrenia
     Dosage: 500 MG, DAILY
  14. PERAZINE [Suspect]
     Active Substance: PERAZINE
     Dosage: 100 MG, DAILY
  15. RISPERIDONE [Suspect]
     Active Substance: RISPERIDONE
     Indication: Schizophrenia
     Dosage: UNK
  16. VALPROIC ACID [Suspect]
     Active Substance: VALPROIC ACID
     Indication: Seizure
     Dosage: UNK
     Route: 048
  17. VALPROIC ACID [Suspect]
     Active Substance: VALPROIC ACID
     Dosage: UNK
     Route: 042
  18. ZUCLOPENTHIXOL [Suspect]
     Active Substance: ZUCLOPENTHIXOL
     Indication: Schizophrenia
     Dosage: 5 MG, 1X/DAY

REACTIONS (10)
  - Encephalitis autoimmune [Recovered/Resolved]
  - Pneumonia aspiration [Recovered/Resolved]
  - Drug withdrawal syndrome [Recovered/Resolved]
  - Epilepsy [Recovered/Resolved]
  - Loss of consciousness [Recovered/Resolved]
  - Anterograde amnesia [Recovered/Resolved]
  - Syncope [Recovered/Resolved]
  - Micturition disorder [Recovered/Resolved]
  - Off label use [Unknown]
  - Drug ineffective for unapproved indication [Unknown]
